FAERS Safety Report 10251885 (Version 1)
Quarter: 2014Q2

REPORT INFORMATION
  Report Type: Spontaneous
  Country: IT (occurrence: IT)
  Receive Date: 20140623
  Receipt Date: 20140623
  Transmission Date: 20141212
  Serious: Yes (Other)
  Sender: FDA-Public Use
  Company Number: IT-ABBVIE-14K-083-1250301-00

PATIENT
  Age: 2 Month
  Sex: Female

DRUGS (2)
  1. DEPAKINE CHRONO [Suspect]
     Indication: ACCIDENTAL POISONING
     Route: 048
     Dates: start: 20131020, end: 20131020
  2. NEODUPLAMOX [Concomitant]
     Indication: PRODUCT USED FOR UNKNOWN INDICATION
     Dates: start: 20131013, end: 20131020

REACTIONS (2)
  - Accidental poisoning [Recovered/Resolved]
  - Malaise [Recovered/Resolved]
